FAERS Safety Report 9297988 (Version 1)
Quarter: 2013Q2

REPORT INFORMATION
  Report Type: Spontaneous
  Country: DE (occurrence: DE)
  Receive Date: 20130520
  Receipt Date: 20130520
  Transmission Date: 20140414
  Serious: Yes (Hospitalization)
  Sender: FDA-Public Use
  Company Number: DE-PFIZER INC-2013153474

PATIENT
  Age: 45 Year
  Sex: Female

DRUGS (2)
  1. ZELDOX [Suspect]
     Indication: DEPRESSION
     Dosage: 10 MG, 2X/DAY
  2. ZELDOX [Suspect]
     Dosage: 15 MG, 2X/DAY

REACTIONS (5)
  - Aspartate aminotransferase increased [Unknown]
  - Abdominal pain [Unknown]
  - Lip swelling [Unknown]
  - Swollen tongue [Unknown]
  - Hypersensitivity [Unknown]
